FAERS Safety Report 20577338 (Version 1)
Quarter: 2022Q1

REPORT INFORMATION
  Report Type: Spontaneous
  Country: JP (occurrence: JP)
  Receive Date: 20220310
  Receipt Date: 20220310
  Transmission Date: 20220423
  Serious: Yes (Hospitalization, Other)
  Sender: FDA-Public Use
  Company Number: JP-ELI_LILLY_AND_COMPANY-JP202203002878

PATIENT
  Age: 0 Year
  Sex: Female
  Weight: 8.88 kg

DRUGS (17)
  1. ADCIRCA [Suspect]
     Active Substance: TADALAFIL
     Indication: Pulmonary arterial hypertension
     Dosage: 8.4 MG, DAILY
     Route: 065
  2. UPTRAVI [Suspect]
     Active Substance: SELEXIPAG
     Indication: Pulmonary arterial hypertension
     Dosage: 0.025 MG, BID
     Route: 048
     Dates: start: 20180327, end: 20180410
  3. UPTRAVI [Suspect]
     Active Substance: SELEXIPAG
     Dosage: 0.04 MG, BID
     Route: 048
     Dates: start: 20180411, end: 20180417
  4. UPTRAVI [Suspect]
     Active Substance: SELEXIPAG
     Dosage: 0.055 MG, BID
     Route: 048
     Dates: start: 20180418, end: 20180424
  5. UPTRAVI [Suspect]
     Active Substance: SELEXIPAG
     Dosage: 0.07 MG, BID
     Route: 048
     Dates: start: 20180425, end: 20180501
  6. UPTRAVI [Suspect]
     Active Substance: SELEXIPAG
     Dosage: 0.085 MG, BID
     Route: 048
     Dates: start: 20180502, end: 20180508
  7. UPTRAVI [Suspect]
     Active Substance: SELEXIPAG
     Dosage: 0.1 MG, BID
     Route: 048
     Dates: start: 20180509, end: 20180515
  8. UPTRAVI [Suspect]
     Active Substance: SELEXIPAG
     Dosage: 0.11 MG, BID
     Route: 048
     Dates: start: 20180516, end: 20180522
  9. UPTRAVI [Suspect]
     Active Substance: SELEXIPAG
     Dosage: 0.125 MG, BID
     Route: 048
     Dates: start: 20180523, end: 20181123
  10. OPSUMIT [Concomitant]
     Active Substance: MACITENTAN
     Indication: Pulmonary arterial hypertension
     Dosage: 1.7 MG
     Route: 065
  11. CONTOL [CHLORDIAZEPOXIDE] [Concomitant]
     Indication: Product used for unknown indication
     Dosage: 10 MG, UNKNOWN
     Route: 065
     Dates: end: 20180523
  12. CARBOCYSTEINE [Concomitant]
     Active Substance: CARBOCYSTEINE
     Indication: Prophylaxis
     Dosage: 200 MG, UNKNOWN
     Route: 065
  13. AMBROXOL HYDROCHLORIDE [Concomitant]
     Active Substance: AMBROXOL HYDROCHLORIDE
     Indication: Prophylaxis
     Dosage: 15 MG, UNKNOWN
  14. HYDROCHLOROTHIAZIDE [Concomitant]
     Active Substance: HYDROCHLOROTHIAZIDE
     Indication: Product used for unknown indication
     Dosage: 5 MG, UNKNOWN
     Route: 065
  15. RIKKUNSHITO [ATRACTYLODES LANCEA RHIZOME;CITR [Concomitant]
     Indication: Product used for unknown indication
     Dosage: UNK, UNKNOWN
     Route: 065
  16. HERBALS [Concomitant]
     Active Substance: HERBALS
     Indication: Product used for unknown indication
     Dosage: UNK, UNKNOWN
     Route: 065
  17. LEVETIRACETAM [Concomitant]
     Active Substance: LEVETIRACETAM
     Indication: Epilepsy
     Dosage: 100 MG, UNKNOWN
     Route: 065
     Dates: start: 20180620

REACTIONS (3)
  - Tracheomalacia [Recovering/Resolving]
  - Epilepsy [Recovering/Resolving]
  - Anaemia [Recovered/Resolved]

NARRATIVE: CASE EVENT DATE: 20180329
